FAERS Safety Report 13648244 (Version 2)
Quarter: 2017Q2

REPORT INFORMATION
  Report Type: Spontaneous
  Country: CH (occurrence: CH)
  Receive Date: 20170613
  Receipt Date: 20170616
  Transmission Date: 20170830
  Serious: Yes (Hospitalization)
  Sender: FDA-Public Use
  Company Number: CH-BAYER-2017-108300

PATIENT
  Age: 42 Year
  Sex: Female

DRUGS (1)
  1. MIRENA [Suspect]
     Active Substance: LEVONORGESTREL
     Dosage: T20 MCG/24HR, CONT
     Route: 015
     Dates: end: 20170601

REACTIONS (12)
  - Panic attack [None]
  - Malaise [None]
  - Flatulence [None]
  - Loss of libido [None]
  - Breast pain [None]
  - Headache [None]
  - Decreased appetite [None]
  - Hyperhidrosis [None]
  - Alopecia [None]
  - Musculoskeletal pain [None]
  - Depressed mood [None]
  - Tachycardia [None]
